FAERS Safety Report 9641326 (Version 1)
Quarter: 2013Q4

REPORT INFORMATION
  Report Type: Spontaneous
  Country: DE (occurrence: DE)
  Receive Date: 20131023
  Receipt Date: 20131023
  Transmission Date: 20140711
  Serious: Yes (Hospitalization, Disabling, Congenital Anomaly)
  Sender: FDA-Public Use
  Company Number: DE-WATSON-2013-19030

PATIENT
  Sex: Male
  Weight: 1.28 kg

DRUGS (5)
  1. CITALOPRAM (UNKNOWN) [Suspect]
     Indication: ANXIETY DISORDER
     Dosage: 1 DF DAILY
     Route: 064
  2. KATADOLON /00890102/ [Suspect]
     Indication: RHEUMATIC DISORDER
     Dosage: 1 DF BID
     Route: 064
  3. TILIDIN [Concomitant]
     Indication: ARTHROPATHY
     Dosage: 1 DF EVERY WEEK
     Route: 064
  4. PANTOPRAZOL [Concomitant]
     Indication: DYSPEPSIA
     Dosage: 40 MG; EVERY WEEK
     Route: 064
  5. DIAZEPAM [Concomitant]
     Indication: PRODUCT USED FOR UNKNOWN INDICATION
     Dosage: 60 MG; EVERY WEEK
     Route: 064

REACTIONS (4)
  - Congenital hydrocephalus [Not Recovered/Not Resolved]
  - Limb reduction defect [Not Recovered/Not Resolved]
  - Pulmonary hypertension [Not Recovered/Not Resolved]
  - Foetal exposure timing unspecified [Not Recovered/Not Resolved]
